FAERS Safety Report 7319898-2 (Version None)
Quarter: 2011Q1

REPORT INFORMATION
  Report Type: 
  Country: None (occurrence: None)
  Receive Date: 20110228
  Receipt Date: 20101123
  Transmission Date: 20110831
  Serious: No
  Sender: FDA-Public Use
  Company Number: A0894677A

PATIENT
  Age: 41 Year
  Sex: Female

DRUGS (3)
  1. BUSPAR [Concomitant]
  2. LAMICTAL [Suspect]
     Dosage: 25MG PER DAY
     Route: 048
     Dates: start: 20101111
  3. HYDROXYZINE [Concomitant]

REACTIONS (7)
  - MYALGIA [None]
  - MUSCULAR WEAKNESS [None]
  - RESTLESSNESS [None]
  - AGITATION [None]
  - IRRITABILITY [None]
  - PALPITATIONS [None]
  - INSOMNIA [None]
